FAERS Safety Report 16149932 (Version 1)
Quarter: 2019Q2

REPORT INFORMATION
  Report Type: Spontaneous
  Country: CH (occurrence: CH)
  Receive Date: 20190402
  Receipt Date: 20190402
  Transmission Date: 20190711
  Serious: Yes (Life-Threatening, Hospitalization, Other)
  Sender: FDA-Public Use
  Company Number: CH-ELI_LILLY_AND_COMPANY-CH201904001144

PATIENT
  Age: 63 Year
  Sex: Male

DRUGS (8)
  1. LEPONEX [Suspect]
     Active Substance: CLOZAPINE
     Indication: SCHIZOPHRENIA
     Dosage: 100 MG, QD
     Route: 065
  2. VALPROAT [Concomitant]
     Active Substance: VALPROATE SODIUM
     Indication: PRODUCT USED FOR UNKNOWN INDICATION
     Dosage: 1500 MG, QD
     Route: 065
  3. TIOTROPIUM [Concomitant]
     Active Substance: TIOTROPIUM
     Indication: PRODUCT USED FOR UNKNOWN INDICATION
     Dosage: 18 PG, QD
     Route: 055
  4. BUDESONIDE;FORMOTEROL [Concomitant]
     Indication: PRODUCT USED FOR UNKNOWN INDICATION
     Dosage: UNK UNK, UNKNOWN
     Route: 055
  5. CO-AMOXICILLIN [Suspect]
     Active Substance: AMOXICILLIN\CLAVULANATE POTASSIUM
     Indication: PRODUCT USED FOR UNKNOWN INDICATION
     Dosage: 2 G, QD
     Route: 065
  6. LEPONEX [Suspect]
     Active Substance: CLOZAPINE
     Dosage: 300 UNK
     Route: 065
  7. OLANZAPINE. [Suspect]
     Active Substance: OLANZAPINE
     Indication: PSYCHOTIC DISORDER
     Dosage: 15 MG, QD
     Route: 065
  8. PROPRANOLOL [Concomitant]
     Active Substance: PROPRANOLOL HYDROCHLORIDE
     Indication: PRODUCT USED FOR UNKNOWN INDICATION
     Dosage: 60 MG, QD
     Route: 065

REACTIONS (17)
  - Pneumonia aspiration [Recovering/Resolving]
  - Infection [Unknown]
  - Delirium [Recovering/Resolving]
  - Speech disorder [Unknown]
  - General physical condition abnormal [Unknown]
  - Confusional state [Recovered/Resolved]
  - Incoherent [Recovered/Resolved]
  - Tremor [Recovered/Resolved]
  - Condition aggravated [Unknown]
  - Dyspnoea [Recovering/Resolving]
  - Somnolence [Recovering/Resolving]
  - Disturbance in attention [Recovered/Resolved]
  - Salivary hypersecretion [Recovering/Resolving]
  - C-reactive protein increased [Recovering/Resolving]
  - Disorientation [Recovering/Resolving]
  - Fatigue [Recovering/Resolving]
  - Sputum abnormal [Unknown]
